FAERS Safety Report 5222410-5 (Version None)
Quarter: 2007Q1

REPORT INFORMATION
  Report Type: 
  Country: None (occurrence: None)
  Receive Date: 20070129
  Receipt Date: 20060810
  Transmission Date: 20070707
  Serious: No
  Sender: FDA-Public Use
  Company Number: US-BRISTOL-MYERS SQUIBB COMPANY-13471156

PATIENT
  Age: 51 Year
  Sex: Female
  Weight: 52 kg

DRUGS (9)
  1. DESYREL [Suspect]
     Indication: INSOMNIA
     Dates: end: 20060807
  2. SINGULAIR [Concomitant]
  3. ALLEGRA [Concomitant]
  4. NORVASC [Concomitant]
  5. NEXIUM [Concomitant]
  6. BACLOFEN [Concomitant]
  7. ALBUTEROL [Concomitant]
  8. PLAQUENIL [Concomitant]
  9. LUNESTA [Concomitant]
     Dates: start: 20060807

REACTIONS (5)
  - BUNDLE BRANCH BLOCK LEFT [None]
  - DYSTONIA [None]
  - HEPATIC ENZYME INCREASED [None]
  - SINUS TACHYCARDIA [None]
  - VENTRICULAR TACHYCARDIA [None]
